FAERS Safety Report 4932147-5 (Version None)
Quarter: 2006Q1

REPORT INFORMATION
  Report Type: 
  Country: None (occurrence: None)
  Receive Date: 20060303
  Receipt Date: 20060210
  Transmission Date: 20060701
  Serious: Yes (Life-Threatening, Hospitalization)
  Sender: FDA-Public Use
  Company Number: US-ROCHE-436204

PATIENT
  Age: 44 Year
  Sex: Male
  Weight: 111.1 kg

DRUGS (12)
  1. KLONOPIN [Suspect]
     Indication: ANXIETY
     Route: 065
     Dates: start: 20050614, end: 20050909
  2. PEG-INTRON [Suspect]
     Indication: HEPATITIS C
     Route: 058
     Dates: start: 20050304, end: 20050614
  3. PEG-INTRON [Suspect]
     Route: 058
     Dates: start: 20050614, end: 20050715
  4. REBETOL [Suspect]
     Indication: HEPATITIS C
     Route: 048
     Dates: start: 20050304, end: 20050614
  5. REBETOL [Suspect]
     Route: 048
     Dates: start: 20050614, end: 20050715
  6. EFFEXOR XR [Suspect]
     Indication: ANXIETY
     Route: 048
     Dates: start: 20050215, end: 20050331
  7. XANAX [Suspect]
     Indication: ANXIETY
     Route: 048
     Dates: start: 20050331, end: 20050407
  8. XANAX [Suspect]
     Route: 048
     Dates: start: 20050407, end: 20050412
  9. XANAX [Suspect]
     Route: 048
     Dates: start: 20050412, end: 20050414
  10. XANAX [Suspect]
     Dosage: GIVEN AT BEDTIME
     Route: 048
     Dates: start: 20050412, end: 20050414
  11. XANAX [Suspect]
     Route: 048
     Dates: end: 20050614
  12. XANAX [Suspect]
     Route: 048
     Dates: start: 20050909

REACTIONS (22)
  - ABDOMINAL PAIN [None]
  - ANXIETY [None]
  - BRAIN OEDEMA [None]
  - CHEST PAIN [None]
  - CLAVICLE FRACTURE [None]
  - CONCUSSION [None]
  - CONVULSION [None]
  - DEPRESSION SUICIDAL [None]
  - DISSOCIATIVE IDENTITY DISORDER [None]
  - DRUG HYPERSENSITIVITY [None]
  - DRUG LEVEL INCREASED [None]
  - DYSPNOEA [None]
  - HEAD INJURY [None]
  - HEPATIC PAIN [None]
  - HYPERHIDROSIS [None]
  - LOCAL SWELLING [None]
  - LOSS OF CONSCIOUSNESS [None]
  - PANIC ATTACK [None]
  - RIB FRACTURE [None]
  - ROAD TRAFFIC ACCIDENT [None]
  - SHOULDER PAIN [None]
  - WEIGHT DECREASED [None]
